FAERS Safety Report 12974793 (Version 5)
Quarter: 2017Q4

REPORT INFORMATION
  Report Type: Spontaneous
  Country: US (occurrence: US)
  Receive Date: 20161125
  Receipt Date: 20171016
  Transmission Date: 20180320
  Serious: Yes (Other)
  Sender: FDA-Public Use
  Company Number: US-TAKEDA-2016MPI007694

PATIENT
  Age: 68 Year
  Sex: Female
  Weight: 64.85 kg

DRUGS (2)
  1. NINLARO [Suspect]
     Active Substance: IXAZOMIB CITRATE
     Indication: PLASMA CELL MYELOMA
     Dosage: 3 MG, Q2WEEKS
     Route: 048
     Dates: start: 20160908
  2. REVLIMID [Suspect]
     Active Substance: LENALIDOMIDE
     Indication: PLASMA CELL MYELOMA
     Dosage: UNK
     Route: 065

REACTIONS (5)
  - Laboratory test abnormal [Unknown]
  - Pneumonia [Unknown]
  - Cataract [Unknown]
  - Diarrhoea [Unknown]
  - Platelet count decreased [Recovering/Resolving]

NARRATIVE: CASE EVENT DATE: 201702
